FAERS Safety Report 14387739 (Version 2)
Quarter: 2018Q3

REPORT INFORMATION
  Report Type: Spontaneous
  Country: US (occurrence: US)
  Receive Date: 20180115
  Receipt Date: 20180705
  Transmission Date: 20181010
  Serious: Yes (Other)
  Sender: FDA-Public Use
  Company Number: US-SA-2017SA185596

PATIENT
  Age: 55 Year
  Sex: Female
  Weight: 67 kg

DRUGS (7)
  1. TAXOTERE [Suspect]
     Active Substance: DOCETAXEL
     Dosage: 50MG/250ML
     Route: 042
     Dates: start: 2003, end: 2003
  2. ACETYLSALICYLIC ACID [Concomitant]
     Active Substance: ASPIRIN
  3. ZOCOR [Concomitant]
     Active Substance: SIMVASTATIN
  4. TAXOTERE [Suspect]
     Active Substance: DOCETAXEL
     Indication: BREAST CANCER FEMALE
     Dosage: 50MG/250ML
     Route: 042
     Dates: start: 2002, end: 2002
  5. AMARYL [Concomitant]
     Active Substance: GLIMEPIRIDE
  6. GLUCOPHAGE [Concomitant]
     Active Substance: METFORMIN HYDROCHLORIDE
  7. ZOFRAN [ONDANSETRON HYDROCHLORIDE] [Concomitant]

REACTIONS (2)
  - Alopecia [Recovering/Resolving]
  - Psychological trauma [Unknown]

NARRATIVE: CASE EVENT DATE: 200308
